FAERS Safety Report 20624300 (Version 1)
Quarter: 2022Q1

REPORT INFORMATION
  Report Type: Spontaneous
  Country: US (occurrence: US)
  Receive Date: 20220322
  Receipt Date: 20220322
  Transmission Date: 20220424
  Serious: No
  Sender: FDA-Public Use
  Company Number: US-SA-SAC20220317000196

PATIENT
  Age: 14 Year
  Sex: Male

DRUGS (4)
  1. DUPIXENT [Suspect]
     Active Substance: DUPILUMAB
     Indication: Dermatitis atopic
     Dosage: 200 MG (1 SYRINGE), QOW, 200 MG/1.14ML
     Route: 058
     Dates: start: 20210112
  2. CLOBETASOL [Concomitant]
     Active Substance: CLOBETASOL
  3. HYDROCORTISONE ACETATE [Concomitant]
     Active Substance: HYDROCORTISONE ACETATE
  4. FLUOCINONIDE [Concomitant]
     Active Substance: FLUOCINONIDE

REACTIONS (2)
  - Product use issue [Unknown]
  - Dry eye [Not Recovered/Not Resolved]

NARRATIVE: CASE EVENT DATE: 20210112
